FAERS Safety Report 18138793 (Version 1)
Quarter: 2020Q3

REPORT INFORMATION
  Report Type: Spontaneous
  Country: US (occurrence: US)
  Receive Date: 20200811
  Receipt Date: 20200811
  Transmission Date: 20201103
  Serious: Yes (Hospitalization)
  Sender: FDA-Public Use
  Company Number: None

PATIENT
  Sex: Female

DRUGS (2)
  1. MYCOPHENOLATE++ 500MG ROXANE [Suspect]
     Active Substance: MYCOPHENOLATE MOFETIL
     Indication: RENAL TRANSPLANT
     Route: 048
     Dates: start: 20200501
  2. TACROLIMUS 1MG STRIDES PHARMA [Suspect]
     Active Substance: TACROLIMUS
     Indication: RENAL TRANSPLANT
     Route: 048
     Dates: start: 20200417

REACTIONS (9)
  - Nausea [None]
  - Toxicity to various agents [None]
  - Gait inability [None]
  - Chills [None]
  - Haemorrhage [None]
  - Fatigue [None]
  - Diarrhoea [None]
  - Faeces discoloured [None]
  - Feeling abnormal [None]
